FAERS Safety Report 9456226 (Version 1)
Quarter: 2013Q3

REPORT INFORMATION
  Report Type: Spontaneous
  Country: IT (occurrence: IT)
  Receive Date: 20130813
  Receipt Date: 20130813
  Transmission Date: 20140515
  Serious: Yes (Hospitalization)
  Sender: FDA-Public Use
  Company Number: IT-ACTAVIS-2013-14127

PATIENT
  Age: 65 Year
  Sex: Male

DRUGS (3)
  1. IBUPROFEN (UNKNOWN) [Suspect]
     Indication: CHEST PAIN
     Dosage: 600 MG, DAILY
     Route: 048
     Dates: start: 20130530, end: 20130530
  2. NIMESULIDE (UNKNOWN) [Suspect]
     Indication: CHEST PAIN
     Dosage: 1 DF, DAILY
     Dates: start: 20130530, end: 20130530
  3. DILTIAZEM [Concomitant]
     Indication: PRODUCT USED FOR UNKNOWN INDICATION
     Route: 065

REACTIONS (2)
  - Hypotension [Recovered/Resolved]
  - Rectal haemorrhage [Recovered/Resolved]
